FAERS Safety Report 16415566 (Version 1)
Quarter: 2019Q2

REPORT INFORMATION
  Report Type: Spontaneous
  Country: US (occurrence: US)
  Receive Date: 20190611
  Receipt Date: 20190611
  Transmission Date: 20190711
  Serious: No
  Sender: FDA-Public Use
  Company Number: US-TEVA-2019-US-1058792

PATIENT

DRUGS (1)
  1. BUPRENORPHINE. [Suspect]
     Active Substance: BUPRENORPHINE
     Dosage: FORM STRENGTH 20 MCG/HR
     Route: 061
     Dates: start: 20190426, end: 20190518

REACTIONS (7)
  - Skin irritation [Unknown]
  - Therapeutic product effect decreased [Unknown]
  - Skin disorder [Unknown]
  - Blister [Unknown]
  - Rash [Unknown]
  - Product adhesion issue [Unknown]
  - Product substitution issue [Unknown]
